FAERS Safety Report 15671177 (Version 1)
Quarter: 2018Q4

REPORT INFORMATION
  Report Type: Spontaneous
  Country: DE (occurrence: DE)
  Receive Date: 20181129
  Receipt Date: 20181129
  Transmission Date: 20190205
  Serious: Yes (Other)
  Sender: FDA-Public Use
  Company Number: DE-TEVA-2018-DE-979837

PATIENT
  Age: 26 Year
  Sex: Female
  Weight: 70 kg

DRUGS (2)
  1. DOXYCYCLIN 200 [Suspect]
     Active Substance: DOXYCYCLINE
     Dosage: 200 MILLIGRAM DAILY; ON THE FIRST DAY 2 TABLETS, THEN ALWAYS 1XDAY, THE WHOLE 10-PACK
     Route: 048
     Dates: start: 20181025, end: 20181101
  2. DOXYCYCLIN 200 [Suspect]
     Active Substance: DOXYCYCLINE
     Dosage: AM ERSTEN TAG 2 TABLETTEN, DANN IMMER 1XTAG, DIE GANZE 10ER PACKUNG
     Route: 048
     Dates: start: 20181024, end: 20181024

REACTIONS (9)
  - Nausea [Recovered/Resolved]
  - Genital discomfort [Not Recovered/Not Resolved]
  - Haematochezia [Recovering/Resolving]
  - Dyspepsia [Recovered/Resolved]
  - Dizziness [Recovered/Resolved]
  - Dysuria [Not Recovered/Not Resolved]
  - Pruritus genital [Not Recovered/Not Resolved]
  - Vulvovaginal discomfort [Unknown]
  - Wound [Not Recovered/Not Resolved]

NARRATIVE: CASE EVENT DATE: 201810
